FAERS Safety Report 11926222 (Version 1)
Quarter: 2016Q1

REPORT INFORMATION
  Report Type: Spontaneous
  Country: CN (occurrence: CN)
  Receive Date: 20160119
  Receipt Date: 20160119
  Transmission Date: 20160526
  Serious: Yes (Hospitalization)
  Sender: FDA-Public Use
  Company Number: CN-ACCORD-037094

PATIENT
  Age: 53 Year
  Sex: Male

DRUGS (8)
  1. GLYCEROL [Concomitant]
     Active Substance: GLYCERIN
     Indication: INTRACRANIAL PRESSURE INCREASED
     Dosage: GLYCEROL FRUCTOSE, FOR 3 WEEKS
  2. PANTOPRAZOLE [Concomitant]
     Active Substance: PANTOPRAZOLE SODIUM
  3. GLUCOSE/GLUCOSE MONOHYDRATE/GLUCOSE OXIDASE [Concomitant]
     Indication: NUTRITIONAL SUPPLEMENTATION
  4. METHOTREXATE [Suspect]
     Active Substance: METHOTREXATE
     Indication: METASTASES TO MENINGES
     Route: 037
  5. DEXAMETHASONE. [Suspect]
     Active Substance: DEXAMETHASONE
     Indication: METASTASES TO MENINGES
     Route: 037
  6. FRUCTOSE/FRUCTOSE DIPHOSPHATE TRISODIUM [Concomitant]
     Indication: INTRACRANIAL PRESSURE INCREASED
     Dosage: FOR 3 WEEKS
  7. POTASSIUM [Concomitant]
     Active Substance: POTASSIUM
     Indication: NUTRITIONAL SUPPLEMENTATION
  8. MANNITOL. [Concomitant]
     Active Substance: MANNITOL
     Indication: INTRACRANIAL PRESSURE INCREASED
     Dosage: STRENGTH: 20 %

REACTIONS (2)
  - White blood cell count decreased [Recovered/Resolved]
  - Hypoaesthesia [Recovered/Resolved]
